FAERS Safety Report 18111331 (Version 1)
Quarter: 2020Q3

REPORT INFORMATION
  Report Type: Spontaneous
  Country: US (occurrence: US)
  Receive Date: 20200804
  Receipt Date: 20200804
  Transmission Date: 20201103
  Serious: No
  Sender: FDA-Public Use
  Company Number: US-LEXICON PHARMACEUTICALS, INC-20-1606-00581

PATIENT
  Age: 51 Year
  Sex: Female

DRUGS (12)
  1. VOLTAREN [Concomitant]
     Active Substance: DICLOFENAC SODIUM
  2. QSYMIA [Concomitant]
     Active Substance: PHENTERMINE HYDROCHLORIDE\TOPIRAMATE
  3. XERMELO [Suspect]
     Active Substance: TELOTRISTAT ETHYL
     Indication: CARCINOID TUMOUR
     Dates: start: 20180410
  4. FENOFIBRATE. [Concomitant]
     Active Substance: FENOFIBRATE
  5. DIAZEPAM. [Concomitant]
     Active Substance: DIAZEPAM
  6. CARVEDILOL. [Concomitant]
     Active Substance: CARVEDILOL
  7. CREON [Concomitant]
     Active Substance: PANCRELIPASE AMYLASE\PANCRELIPASE LIPASE\PANCRELIPASE PROTEASE
  8. OCTREOTIDE ACETATE. [Concomitant]
     Active Substance: OCTREOTIDE ACETATE
  9. IRBESARTAN. [Concomitant]
     Active Substance: IRBESARTAN
  10. ARMOUR THYROID [Concomitant]
     Active Substance: THYROID, PORCINE
  11. FUROSEMIDE. [Concomitant]
     Active Substance: FUROSEMIDE
  12. LORTAB [Concomitant]
     Active Substance: ACETAMINOPHEN\HYDROCODONE BITARTRATE

REACTIONS (2)
  - Foot fracture [Unknown]
  - Fall [Unknown]
